FAERS Safety Report 14162822 (Version 2)
Quarter: 2017Q4

REPORT INFORMATION
  Report Type: Spontaneous
  Country: NL (occurrence: NL)
  Receive Date: 20171106
  Receipt Date: 20171129
  Transmission Date: 20180321
  Serious: Yes (Other)
  Sender: FDA-Public Use
  Company Number: NL-BAYER-2017-208228

PATIENT
  Sex: Male

DRUGS (2)
  1. OXYCONTIN [Concomitant]
     Active Substance: OXYCODONE HYDROCHLORIDE
  2. XOFIGO [Suspect]
     Active Substance: RADIUM RA-223 DICHLORIDE
     Indication: HORMONE-REFRACTORY PROSTATE CANCER
     Dosage: UNK
     Dates: start: 201403, end: 201409

REACTIONS (5)
  - Diarrhoea [None]
  - Prostatic specific antigen increased [None]
  - Lower urinary tract symptoms [Recovered/Resolved]
  - Blood alkaline phosphatase increased [None]
  - Prostatomegaly [None]
